FAERS Safety Report 4359732-6 (Version None)
Quarter: 2004Q2

REPORT INFORMATION
  Report Type: 
  Country: None (occurrence: None)
  Receive Date: 20040512
  Receipt Date: 20040427
  Transmission Date: 20050107
  Serious: No
  Sender: FDA-Public Use
  Company Number: 2004AP01405

PATIENT
  Age: 74 Year
  Sex: Male

DRUGS (11)
  1. IRESSA [Suspect]
     Indication: LUNG ADENOCARCINOMA
     Dosage: 250 MG DAILY PO
     Route: 048
     Dates: start: 20030903, end: 20040204
  2. IRESSA [Suspect]
     Indication: NON-SMALL CELL LUNG CANCER
     Dosage: 250 MG DAILY PO
     Route: 048
     Dates: start: 20030903, end: 20040204
  3. ITOROL [Concomitant]
  4. GLYBURIDE [Concomitant]
  5. TANATRIL ^ALGOL^ [Concomitant]
  6. DEPAS [Concomitant]
  7. ASPIRIN [Concomitant]
  8. MAINTATE [Concomitant]
  9. MEVALOTIN [Concomitant]
  10. WARFARIN SODIUM [Concomitant]
  11. LASIX [Concomitant]

REACTIONS (1)
  - PNEUMONIA PRIMARY ATYPICAL [None]
